FAERS Safety Report 16941996 (Version 2)
Quarter: 2020Q1

REPORT INFORMATION
  Report Type: Spontaneous
  Country: US (occurrence: US)
  Receive Date: 20191021
  Receipt Date: 20200121
  Transmission Date: 20200409
  Serious: Yes (Disabling, Other)
  Sender: FDA-Public Use
  Company Number: US-009507513-1910USA011484

PATIENT
  Age: 33 Year
  Sex: Male

DRUGS (1)
  1. ZERBAXA [Suspect]
     Active Substance: CEFTOLOZANE SULFATE\TAZOBACTAM SODIUM
     Indication: PNEUMONIA BACTERIAL
     Dosage: UNK
     Dates: start: 2019, end: 2019

REACTIONS (2)
  - Pneumonia bacterial [Recovering/Resolving]
  - Pathogen resistance [Unknown]

NARRATIVE: CASE EVENT DATE: 2019
